FAERS Safety Report 8125260-5 (Version None)
Quarter: 2012Q1

REPORT INFORMATION
  Report Type: 
  Country: None (occurrence: None)
  Receive Date: 20120206
  Receipt Date: 20120123
  Transmission Date: 20120608
  Serious: Yes (Other)
  Sender: FDA-Public Use
  Company Number: IL-2012-0440

PATIENT
  Age: 52 Year
  Sex: Female

DRUGS (1)
  1. NAVELBINE [Suspect]
     Indication: BREAST CANCER
     Dosage: 30 MG/M2, IV
     Route: 042
     Dates: start: 19970801

REACTIONS (8)
  - WHEEZING [None]
  - OXYGEN SATURATION DECREASED [None]
  - DYSPNOEA [None]
  - RALES [None]
  - PLEURAL EFFUSION [None]
  - FEBRILE NEUTROPENIA [None]
  - PULMONARY OEDEMA [None]
  - TACHYPNOEA [None]
